FAERS Safety Report 7518803-3 (Version None)
Quarter: 2011Q2

REPORT INFORMATION
  Report Type: 
  Country: None (occurrence: None)
  Receive Date: 20110523
  Receipt Date: 20110512
  Transmission Date: 20111010
  Serious: Yes (Other)
  Sender: FDA-Public Use
  Company Number: THQ2011A02327

PATIENT
  Age: 76 Year
  Sex: Female

DRUGS (4)
  1. LANSOPRAZOLE [Suspect]
     Indication: HIATUS HERNIA
     Dosage: (1 IN 1 D) PER ORAL
     Route: 048
     Dates: start: 20110404, end: 20110411
  2. MADOPAR 250 MG COMPRIMIDOS, 100 COMPRIMIDOS (LEVODOPA, BENSERAZIDE HYD [Suspect]
     Indication: PARKINSON'S DISEASE
     Dosage: 1.2 MG (0.24 MG, 5 IN 1 D) PER ORAL
     Route: 048
     Dates: start: 19980101
  3. TRANXILIUM 5 CAPSULAS, 30 CAPSULAS (CLORAZEPATE DIPOTASSIUM) [Concomitant]
  4. AREMIAS 50 MG COMPRIMIDOS RECUBIERTOS CON PELICULA 30 COMPRIMIDOS (SER [Concomitant]

REACTIONS (6)
  - DRUG INTOLERANCE [None]
  - CONDITION AGGRAVATED [None]
  - HIATUS HERNIA [None]
  - PARKINSONISM [None]
  - DRUG INEFFECTIVE [None]
  - DEPRESSION [None]
